FAERS Safety Report 9200727 (Version 1)
Quarter: 2013Q2

REPORT INFORMATION
  Report Type: Spontaneous
  Country: US (occurrence: US)
  Receive Date: 20130401
  Receipt Date: 20130401
  Transmission Date: 20140414
  Serious: Yes (Other)
  Sender: FDA-Public Use
  Company Number: US-BIOGENIDEC-2013BI028122

PATIENT
  Age: 62 Year
  Sex: Female

DRUGS (2)
  1. TYSABRI [Suspect]
     Indication: MULTIPLE SCLEROSIS
     Route: 042
     Dates: start: 20080319, end: 20101221
  2. TYSABRI [Suspect]
     Indication: MULTIPLE SCLEROSIS
     Route: 042
     Dates: start: 20111111

REACTIONS (5)
  - Cystitis [Not Recovered/Not Resolved]
  - Kidney infection [Recovered/Resolved with Sequelae]
  - Lung infection [Not Recovered/Not Resolved]
  - Sepsis [Recovered/Resolved with Sequelae]
  - Asthenia [Not Recovered/Not Resolved]
